FAERS Safety Report 12481195 (Version 1)
Quarter: 2016Q2

REPORT INFORMATION
  Report Type: Spontaneous
  Country: EG (occurrence: EG)
  Receive Date: 20160620
  Receipt Date: 20160620
  Transmission Date: 20160815
  Serious: Yes (Other)
  Sender: FDA-Public Use
  Company Number: EG-JNJFOC-20160613896

PATIENT

DRUGS (2)
  1. SOVALDI [Suspect]
     Active Substance: SOFOSBUVIR
     Indication: CHRONIC HEPATITIS C
     Dosage: 12 WEEKS
     Route: 065
  2. OLYSIO [Suspect]
     Active Substance: SIMEPREVIR
     Indication: CHRONIC HEPATITIS C
     Dosage: FOR 12 WEEKS
     Route: 065

REACTIONS (7)
  - Headache [Unknown]
  - Rash [Unknown]
  - Treatment failure [Unknown]
  - Fatigue [Unknown]
  - Hyperbilirubinaemia [Unknown]
  - Hepatitis C [Unknown]
  - Pruritus [Unknown]
